FAERS Safety Report 5477688-X (Version None)
Quarter: 2007Q4

REPORT INFORMATION
  Report Type: 
  Country: None (occurrence: None)
  Receive Date: 20071003
  Receipt Date: 20071003
  Transmission Date: 20080405
  Serious: No
  Sender: FDA-Public Use
  Company Number: None

PATIENT
  Age: 65 Year
  Sex: Male

DRUGS (1)
  1. ACETAMINOPHEN AND CODEINE PHOSPHATE [Suspect]
     Indication: PAIN
     Dosage: 1TAB OTHER PO
     Route: 048
     Dates: start: 20070727, end: 20070728

REACTIONS (2)
  - ANGIOEDEMA [None]
  - PRURITUS GENERALISED [None]
